FAERS Safety Report 19731161 (Version 2)
Quarter: 2021Q3

REPORT INFORMATION
  Report Type: Spontaneous
  Country: CA (occurrence: CA)
  Receive Date: 20210821
  Receipt Date: 20210929
  Transmission Date: 20211014
  Serious: Yes (Other)
  Sender: FDA-Public Use
  Company Number: CA-AMGEN-CANNI2021129614

PATIENT

DRUGS (3)
  1. VITAMIN D [VITAMIN D NOS] [Concomitant]
     Active Substance: VITAMIN D NOS
     Indication: POSTOPERATIVE CARE
     Dosage: 50000 INTERNATIONAL UNIT (GREATER THAN OR EQUAL TO 800 IU)
  2. ROMOSOZUMAB [Suspect]
     Active Substance: ROMOSOZUMAB
     Indication: HIP FRACTURE
     Dosage: UNK
     Route: 058
  3. CALCIUM [Concomitant]
     Active Substance: CALCIUM
     Indication: POSTOPERATIVE CARE
     Dosage: GREATER THAN OR EQUAL TO 1000 MILLIGRAMS

REACTIONS (15)
  - Cellulitis [Unknown]
  - Pneumonia bacterial [Unknown]
  - Neoplasm [Unknown]
  - Acute myeloid leukaemia [Unknown]
  - Diverticulitis [Unknown]
  - Complication associated with device [Unknown]
  - Acute pulmonary oedema [Unknown]
  - Lower respiratory tract infection [Unknown]
  - Postoperative wound infection [Unknown]
  - Cardiac failure [Unknown]
  - Acute generalised exanthematous pustulosis [Recovered/Resolved]
  - Cerebrovascular accident [Unknown]
  - Pneumonia [Unknown]
  - Hip fracture [Unknown]
  - Acute myocardial infarction [Unknown]
